FAERS Safety Report 23902764 (Version 1)
Quarter: 2024Q2

REPORT INFORMATION
  Report Type: Spontaneous
  Country: JP (occurrence: JP)
  Receive Date: 20240527
  Receipt Date: 20240527
  Transmission Date: 20240716
  Serious: Yes (Death)
  Sender: FDA-Public Use
  Company Number: JP-STRIDES ARCOLAB LIMITED-2024SP006076

PATIENT

DRUGS (6)
  1. PREDNISOLONE [Suspect]
     Active Substance: PREDNISOLONE
     Indication: Diffuse large B-cell lymphoma
     Dosage: 100 MILLIGRAM, CYCLICAL (RECEIVED EVERY DAY ON DAYS?2?6 OF THE CYCLE; EVERY 3 WEEKS UNDER R-CHOP REG
     Route: 048
  2. RITUXIMAB [Suspect]
     Active Substance: RITUXIMAB
     Indication: Diffuse large B-cell lymphoma
     Dosage: 375 MILLIGRAM/SQ. METER, CYCLICAL (RECEIVED ON DAY 1 OF THE CYCLE; EVERY 3 WEEKS UNDER R-CHOP REGIME
     Route: 042
  3. CYCLOPHOSPHAMIDE [Suspect]
     Active Substance: CYCLOPHOSPHAMIDE
     Indication: Diffuse large B-cell lymphoma
     Dosage: 750 MILLIGRAM/SQ. METER, CYCLICAL (RECEIVED ON DAY 2 OF THE CYCLE; EVERY 3 WEEKS UNDER R-CHOP REGIME
     Route: 042
  4. ADRIAMYCIN [Suspect]
     Active Substance: DOXORUBICIN HYDROCHLORIDE
     Indication: Diffuse large B-cell lymphoma
     Dosage: 50 MILLIGRAM/SQ. METER, CYCLICAL (RECEIVED ON DAY 2 OF THE CYCLE; EVERY 3 WEEKS UNDER R-CHOP REGIMEN
     Route: 042
  5. VINCRISTINE [Suspect]
     Active Substance: VINCRISTINE
     Indication: Diffuse large B-cell lymphoma
     Dosage: 1.4 MILLIGRAM/SQ. METER, CYCLICAL (RECEIVED ON DAY 2 OF THE CYCLE; EVERY 3 WEEKS UNDER R-CHOP REGIME
     Route: 042
  6. VINCRISTINE [Suspect]
     Active Substance: VINCRISTINE
     Dosage: UNK, CYCLICAL (~RECEIVED INCREASED DOSE UP TO 2.0 MG/M2 ON DAY 2 OF THE CYCLE; EVERY 3 WEEKS UNDER R
     Route: 042

REACTIONS (1)
  - Interstitial lung disease [Fatal]
